FAERS Safety Report 4366470-2 (Version None)
Quarter: 2004Q2

REPORT INFORMATION
  Report Type: 
  Country: None (occurrence: None)
  Receive Date: 20040527
  Receipt Date: 20040412
  Transmission Date: 20050107
  Serious: No
  Sender: FDA-Public Use
  Company Number: US-BRISTOL-MYERS SQUIBB COMPANY-12557450

PATIENT
  Age: 74 Year
  Sex: Female
  Weight: 77 kg

DRUGS (2)
  1. ERBITUX [Suspect]
     Indication: COLON CANCER
     Dosage: INFUSION INTERRUPTED AND TO BE RESTARTED WITHIN ONE HOUR.
     Route: 042
     Dates: start: 20040412, end: 20040412
  2. BENADRYL [Concomitant]
     Indication: PREMEDICATION
     Dates: start: 20040412, end: 20040412

REACTIONS (2)
  - RASH PRURITIC [None]
  - RESTLESSNESS [None]
